FAERS Safety Report 9293988 (Version 1)
Quarter: 2013Q1

REPORT INFORMATION
  Report Type: Spontaneous
  Country: US (occurrence: None)
  Receive Date: 20121221
  Receipt Date: 20121221
  Transmission Date: 20140127
  Serious: Yes (Other)
  Sender: FDA-Public Use
  Company Number: PHEH2011US010294

PATIENT
  Age: 6 Year
  Sex: Male

DRUGS (2)
  1. RITALIN [Suspect]
  2. CONCERTA (METHYLPHENIDATE HYDROCHLORIDE) 10 MG [Concomitant]

REACTIONS (5)
  - Attention deficit/hyperactivity disorder [None]
  - Drug ineffective [None]
  - Aggression [None]
  - Insomnia [None]
  - Disturbance in attention [None]
